FAERS Safety Report 8803254 (Version 1)
Quarter: 2012Q4

REPORT INFORMATION
  Report Type: 
  Country: JP (occurrence: JP)
  Receive Date: 20120924
  Receipt Date: 20120924
  Transmission Date: 20130627
  Serious: Yes (Hospitalization)
  Sender: FDA-Public Use
  Company Number: JP-PFIZER INC-2012235225

PATIENT
  Sex: Male

DRUGS (1)
  1. ALDACTONE A [Suspect]
     Dosage: UNK
     Route: 048

REACTIONS (2)
  - Breast swelling [Unknown]
  - Nipple pain [Unknown]
